FAERS Safety Report 10191167 (Version 1)
Quarter: 2014Q2

REPORT INFORMATION
  Report Type: Spontaneous
  Country: US (occurrence: None)
  Receive Date: 20140522
  Receipt Date: 20140522
  Transmission Date: 20141212
  Serious: Yes (Other)
  Sender: FDA-Public Use
  Company Number: None

PATIENT
  Age: 54 Year
  Sex: Female
  Weight: 88.45 kg

DRUGS (8)
  1. GAMMAGARD LIQUID 30 GRAMS [Suspect]
     Indication: IMMUNODEFICIENCY COMMON VARIABLE
     Route: 042
     Dates: start: 20100112, end: 20140521
  2. ATORVASTIN [Concomitant]
  3. METFORMIN [Concomitant]
  4. OMEPRAZOLE [Concomitant]
  5. CELEBREX [Concomitant]
  6. BUTRANS [Concomitant]
  7. LYRICA [Concomitant]
  8. CYMBALTA [Concomitant]

REACTIONS (5)
  - Chills [None]
  - Anxiety [None]
  - Dyspnoea [None]
  - Chest discomfort [None]
  - Syncope [None]
